FAERS Safety Report 13615048 (Version 1)
Quarter: 2017Q2

REPORT INFORMATION
  Report Type: Report from Study
  Country: US (occurrence: US)
  Receive Date: 20170606
  Receipt Date: 20170606
  Transmission Date: 20170830
  Serious: Yes (Life-Threatening)
  Sender: FDA-Public Use
  Company Number: US-BION-006360

PATIENT
  Age: 19 Year
  Sex: Male

DRUGS (1)
  1. LOPERAMIDE HYDROCHLORIDE. [Suspect]
     Active Substance: LOPERAMIDE HYDROCHLORIDE

REACTIONS (8)
  - Tachycardia [Unknown]
  - Cytopenia [Unknown]
  - Coma [Unknown]
  - Hypotension [Unknown]
  - Coagulopathy [Unknown]
  - Rhabdomyolysis [Unknown]
  - Drug use disorder [Not Recovered/Not Resolved]
  - Acidosis [Unknown]
